FAERS Safety Report 18982023 (Version 1)
Quarter: 2021Q1

REPORT INFORMATION
  Report Type: Spontaneous
  Country: US (occurrence: US)
  Receive Date: 20210308
  Receipt Date: 20210308
  Transmission Date: 20210420
  Serious: No
  Sender: FDA-Public Use
  Company Number: US-009507513-2102USA006938

PATIENT
  Age: 4 Year
  Sex: Male

DRUGS (4)
  1. INTRON A [Suspect]
     Active Substance: INTERFERON ALFA-2B
     Dosage: UNK
  2. INTRON A [Suspect]
     Active Substance: INTERFERON ALFA-2B
     Indication: PRODUCT USED FOR UNKNOWN INDICATION
     Dosage: 0.46ML EVERY MONDAY, WEDNESDAY AND FRIDAY
  3. INTRON A [Suspect]
     Active Substance: INTERFERON ALFA-2B
     Dosage: 0.77ML EVERY MONDAY, WEDNESDAY AND FRIDAY
  4. INTRON A [Suspect]
     Active Substance: INTERFERON ALFA-2B
     Dosage: UNK

REACTIONS (5)
  - Product dose omission issue [Unknown]
  - No adverse event [Unknown]
  - Product physical issue [Unknown]
  - Product colour issue [Unknown]
  - Product storage error [Unknown]

NARRATIVE: CASE EVENT DATE: 202102
